FAERS Safety Report 9374494 (Version 1)
Quarter: 2013Q2

REPORT INFORMATION
  Report Type: Spontaneous
  Country: TR (occurrence: None)
  Receive Date: 20130624
  Receipt Date: 20130624
  Transmission Date: 20140414
  Serious: Yes (Hospitalization)
  Sender: FDA-Public Use
  Company Number: TR-012049

PATIENT
  Age: 67 Year
  Sex: Male

DRUGS (4)
  1. DESMOPRESSIN [Suspect]
     Indication: PRODUCT USED FOR UNKNOWN INDICATION
  2. CITALOPRAM (CITALOPRAM) [Suspect]
     Indication: DEPRESSION
  3. CARBAMAZEPINE (CARBAMAZEPINE) [Suspect]
     Indication: MOOD ALTERED
     Dates: start: 2004
  4. PRIMIDONE [Suspect]
     Indication: PRODUCT USED FOR UNKNOWN INDICATION

REACTIONS (3)
  - Mania [None]
  - Depression [None]
  - Hyponatraemia [None]
